FAERS Safety Report 8470668-1 (Version None)
Quarter: 2012Q2

REPORT INFORMATION
  Report Type: 
  Country: None (occurrence: None)
  Receive Date: 20120627
  Receipt Date: 20120625
  Transmission Date: 20120825
  Serious: Yes (Other)
  Sender: FDA-Public Use
  Company Number: PHHY2011US66727

PATIENT
  Sex: Female

DRUGS (6)
  1. SYNTHROID [Concomitant]
     Dosage: 1 DF, DAILY
     Route: 048
     Dates: start: 20120201
  2. GILENYA [Suspect]
     Indication: MULTIPLE SCLEROSIS RELAPSE
     Dosage: 0.5 MG, QD
     Route: 048
     Dates: start: 20110719, end: 20120516
  3. CLIMARA [Concomitant]
     Dosage: 0.05 MG, PER 24 HR
     Route: 062
     Dates: start: 20111027
  4. PROVERA [Concomitant]
     Dosage: 1 DF, DAILY
     Route: 048
     Dates: start: 20111027
  5. VITAMIN D [Concomitant]
     Dosage: 1000 U, DAILY
  6. ASPIRIN [Concomitant]
     Dosage: 81 MG, DAILY
     Route: 048
     Dates: end: 20120117

REACTIONS (6)
  - URINARY TRACT INFECTION [None]
  - ATRIAL FIBRILLATION [None]
  - PALPITATIONS [None]
  - HEART RATE INCREASED [None]
  - HEART RATE DECREASED [None]
  - HEART RATE IRREGULAR [None]
